FAERS Safety Report 17472792 (Version 1)
Quarter: 2020Q1

REPORT INFORMATION
  Report Type: Spontaneous
  Country: US (occurrence: US)
  Receive Date: 20200228
  Receipt Date: 20200228
  Transmission Date: 20200409
  Serious: No
  Sender: FDA-Public Use
  Company Number: None

PATIENT
  Age: 38 Year
  Sex: Male
  Weight: 78.75 kg

DRUGS (3)
  1. VITAMIN D [Concomitant]
     Active Substance: VITAMIN D NOS
  2. TESTOSTERONE CYPIONATE INJECTION USP 200MG/ML 1ML VIAL, SINGLE DOSE [Suspect]
     Active Substance: TESTOSTERONE CYPIONATE
     Indication: BLOOD TESTOSTERONE
     Dosage: ?          QUANTITY:0.5 ML;OTHER FREQUENCY:EVERY 2 WEEKS;?
     Route: 030
  3. SUBOXONE [Concomitant]
     Active Substance: BUPRENORPHINE HYDROCHLORIDE\NALOXONE HYDROCHLORIDE

REACTIONS (3)
  - Lethargy [None]
  - Product contamination physical [None]
  - Feeling abnormal [None]

NARRATIVE: CASE EVENT DATE: 20200202
